FAERS Safety Report 7472441-X (Version None)
Quarter: 2011Q2

REPORT INFORMATION
  Report Type: 
  Country: None (occurrence: None)
  Receive Date: 20110511
  Receipt Date: 20110502
  Transmission Date: 20111010
  Serious: Yes (Hospitalization)
  Sender: FDA-Public Use
  Company Number: BE-MPIJNJ-2011-01218

PATIENT

DRUGS (9)
  1. DEXAMETHASONE SODIUM POSPHATE [Suspect]
     Indication: MULTIPLE MYELOMA
     Dosage: 40 MG, UNK
     Route: 048
     Dates: start: 20110311, end: 20110322
  2. CYCLOPHOSPHAMIDE [Suspect]
     Indication: MULTIPLE MYELOMA
     Dosage: 1000 MG, UNK
     Route: 042
     Dates: start: 20110311, end: 20110318
  3. AMIDARONE [Concomitant]
     Indication: SINUS BRADYCARDIA
     Dosage: UNK
     Route: 048
     Dates: start: 20060301
  4. AMLODIPINE BESYLATE [Concomitant]
     Indication: HYPERTENSION
     Dosage: UNK
     Route: 048
     Dates: start: 20060501
  5. ACETYL SALICYLIC ACID USP BAT [Concomitant]
     Indication: CARDIAC ASSISTANCE DEVICE USER
     Dosage: UNK
     Route: 048
     Dates: start: 20060301
  6. TAMSULOSIN HCL [Concomitant]
     Indication: PROSTATIC OBSTRUCTION
     Dosage: UNK
     Route: 048
     Dates: start: 20100302
  7. PRAVASTATIN [Concomitant]
     Indication: HYPERLIPIDAEMIA
     Dosage: UNK
     Dates: start: 20080101
  8. ALENDRONATE SODIUM [Concomitant]
     Indication: OSTEOPOROSIS
     Dosage: UNK
     Route: 048
     Dates: start: 20081210
  9. VELCADE [Suspect]
     Indication: MULTIPLE MYELOMA
     Dosage: 2.5 MG, UNK
     Route: 042
     Dates: start: 20110311, end: 20110324

REACTIONS (2)
  - CONSTIPATION [None]
  - ABSCESS INTESTINAL [None]
